FAERS Safety Report 7025773-3 (Version None)
Quarter: 2010Q4

REPORT INFORMATION
  Report Type: 
  Country: None (occurrence: None)
  Receive Date: 20101004
  Receipt Date: 20100924
  Transmission Date: 20110411
  Serious: Yes (Hospitalization)
  Sender: FDA-Public Use
  Company Number: US-BIOGENIDEC-2010BI031509

PATIENT
  Age: 39 Year
  Sex: Female

DRUGS (5)
  1. AVONEX [Suspect]
     Indication: MULTIPLE SCLEROSIS
     Route: 030
     Dates: start: 20051210
  2. XANAX [Concomitant]
     Indication: CLAUSTROPHOBIA
     Dates: start: 20100901, end: 20100901
  3. XANAX [Concomitant]
     Indication: ANXIETY
     Dates: start: 20100901, end: 20100901
  4. XANAX [Concomitant]
     Dates: start: 20100901, end: 20100901
  5. XANAX [Concomitant]
     Dates: start: 20100901, end: 20100901

REACTIONS (5)
  - ACCIDENTAL OVERDOSE [None]
  - ANXIETY [None]
  - LOSS OF CONSCIOUSNESS [None]
  - RESPIRATORY ARREST [None]
  - SOPOR [None]
